FAERS Safety Report 23387623 (Version 1)
Quarter: 2024Q1

REPORT INFORMATION
  Report Type: Report from Study
  Country: CA (occurrence: CA)
  Receive Date: 20240110
  Receipt Date: 20240110
  Transmission Date: 20240410
  Serious: Yes (Other)
  Sender: FDA-Public Use
  Company Number: CA-SAMSUNG BIOEPIS-SB-2024-00780

PATIENT
  Sex: Male
  Weight: 107 kg

DRUGS (1)
  1. RENFLEXIS [Suspect]
     Active Substance: INFLIXIMAB-ABDA
     Indication: Crohn^s disease
     Dosage: INJECTION, POWDER FOR SOLUTION
     Route: 042

REACTIONS (3)
  - Sinusitis [Recovering/Resolving]
  - Eye haemorrhage [Unknown]
  - Nasopharyngitis [Recovering/Resolving]
